FAERS Safety Report 19819671 (Version 1)
Quarter: 2021Q3

REPORT INFORMATION
  Report Type: Report from Study
  Country: None (occurrence: US)
  Receive Date: 20210913
  Receipt Date: 20210913
  Transmission Date: 20211014
  Serious: Yes (Other)
  Sender: FDA-Public Use
  Company Number: US-ABBVIE-21K-163-4074702-00

PATIENT
  Sex: Female

DRUGS (2)
  1. DUOPA [Suspect]
     Active Substance: CARBIDOPA\LEVODOPA
  2. DUOPA [Suspect]
     Active Substance: CARBIDOPA\LEVODOPA
     Indication: PARKINSON^S DISEASE
     Dosage: 1?2 CASSETTES MD: 0? 12ML,CD: 0?7.2ML/HR, ED: 0?2.5?STRENGTH: 4.63 TO 20 MG
     Route: 050
     Dates: start: 202010, end: 2021

REACTIONS (1)
  - Hospice care [Unknown]
